FAERS Safety Report 5942958-5 (Version None)
Quarter: 2008Q4

REPORT INFORMATION
  Report Type: 
  Country: None (occurrence: None)
  Receive Date: 20081106
  Receipt Date: 20081006
  Transmission Date: 20090506
  Serious: No
  Sender: FDA-Public Use
  Company Number: US-BAYER-200835503NA

PATIENT
  Age: 28 Year
  Sex: Female

DRUGS (1)
  1. ANGELIQ [Suspect]
     Indication: ORAL CONTRACEPTION
     Route: 048

REACTIONS (2)
  - BREAST DISCHARGE [None]
  - BREAST TENDERNESS [None]
